FAERS Safety Report 25625310 (Version 2)
Quarter: 2025Q3

REPORT INFORMATION
  Report Type: Other
  Country: US (occurrence: US)
  Receive Date: 20250731
  Receipt Date: 20250905
  Transmission Date: 20251020
  Serious: Yes (Other)
  Sender: GLENMARK
  Company Number: US-GLENMARK PHARMACEUTICALS-2025GMK102623

PATIENT
  Sex: Male

DRUGS (1)
  1. CARVEDILOL [Suspect]
     Active Substance: CARVEDILOL
     Indication: Product used for unknown indication
     Route: 048

REACTIONS (4)
  - Hallucination [Unknown]
  - Fall [Unknown]
  - Patient restraint [Unknown]
  - Product quality issue [Unknown]

NARRATIVE: CASE EVENT DATE: 20250103
